FAERS Safety Report 10407043 (Version 1)
Quarter: 2014Q3

REPORT INFORMATION
  Report Type: Spontaneous
  Country: US (occurrence: None)
  Receive Date: 20140822
  Receipt Date: 20140822
  Transmission Date: 20150326
  Serious: Yes (Disabling, Other)
  Sender: FDA-Public Use
  Company Number: None

PATIENT
  Age: 69 Year
  Sex: Male
  Weight: 79.38 kg

DRUGS (1)
  1. PRAVASTATIN SODIUM. [Suspect]
     Active Substance: PRAVASTATIN SODIUM
     Indication: LOW DENSITY LIPOPROTEIN INCREASED
     Dosage: 10MG ONCE DAILY TAKEN BY MOUTH
     Route: 048
     Dates: start: 20140701, end: 20140705

REACTIONS (6)
  - Muscular weakness [None]
  - Hypotonia [None]
  - Myalgia [None]
  - Insomnia [None]
  - Arthralgia [None]
  - Mobility decreased [None]

NARRATIVE: CASE EVENT DATE: 20140703
